FAERS Safety Report 9144194 (Version 4)
Quarter: 2013Q4

REPORT INFORMATION
  Report Type: Spontaneous
  Country: US (occurrence: US)
  Receive Date: 20130306
  Receipt Date: 20131231
  Transmission Date: 20140711
  Serious: Yes (Hospitalization, Other)
  Sender: FDA-Public Use
  Company Number: US-MERCK-1303USA002302

PATIENT
  Sex: Female
  Weight: 108.84 kg

DRUGS (16)
  1. FOSAMAX [Suspect]
     Indication: OSTEOPENIA
     Dosage: 70 MG, QW
     Route: 048
     Dates: start: 20020226, end: 200807
  2. FOSAMAX [Suspect]
     Indication: OSTEOPOROSIS
  3. ALENDRONATE SODIUM [Suspect]
     Indication: OSTEOPENIA
     Dosage: 70 MG, QW
     Route: 048
     Dates: start: 200808, end: 201002
  4. ALENDRONATE SODIUM [Suspect]
     Indication: OSTEOPOROSIS
  5. VITAMINS (UNSPECIFIED) [Concomitant]
     Dosage: QD
     Dates: start: 2000
  6. VITAMIN D (UNSPECIFIED) [Concomitant]
     Dosage: 1000 IU, QD
     Dates: start: 2002
  7. HORMONES (UNSPECIFIED) [Concomitant]
     Dosage: UNK
     Dates: start: 1959
  8. ACTOS [Concomitant]
     Indication: DIABETES MELLITUS
     Dosage: 15 MG, QD
     Route: 048
     Dates: start: 2002, end: 2012
  9. ACTOS [Concomitant]
     Dosage: 30 MG, QD
     Route: 048
     Dates: start: 200403
  10. INSULIN HUMAN [Concomitant]
     Indication: DIABETES MELLITUS
     Dosage: R 25 UNITS W/ N 55 UNITS QAM
  11. INSULIN HUMAN [Concomitant]
     Dosage: R 10 UNITS W/ N 30 UNITS QPM
  12. INSULIN HUMAN [Concomitant]
     Dosage: R 25 W/ 50 NPH QAM
  13. HUMULIN R [Concomitant]
     Indication: DIABETES MELLITUS
     Dosage: 20 UNITS QAM, 5 UNITS QPM
  14. HUMULIN R [Concomitant]
     Dosage: 15 UNITS QAM, 5 UNITS QPM
  15. HUMULIN N [Concomitant]
     Indication: DIABETES MELLITUS
     Dosage: 40 UNITS QAM, 25 UNITS QPM
  16. HUMULIN N [Concomitant]
     Dosage: 40 UNITS QAM, 15 UNITS QPM

REACTIONS (50)
  - Femur fracture [Recovering/Resolving]
  - Intramedullary rod insertion [Recovering/Resolving]
  - Knee arthroplasty [Unknown]
  - Knee arthroplasty [Unknown]
  - Cataract operation [Unknown]
  - Tibia fracture [Recovering/Resolving]
  - Road traffic accident [Recovering/Resolving]
  - Thyroidectomy [Unknown]
  - Humerus fracture [Unknown]
  - Ecchymosis [Recovering/Resolving]
  - Contusion [Recovering/Resolving]
  - Muscle strain [Recovering/Resolving]
  - Excoriation [Recovering/Resolving]
  - Haematoma [Recovering/Resolving]
  - Epistaxis [Recovered/Resolved]
  - Vitamin D deficiency [Unknown]
  - Blood cholesterol increased [Unknown]
  - Fall [Unknown]
  - Hand fracture [Unknown]
  - Laceration [Recovering/Resolving]
  - Rales [Unknown]
  - Joint effusion [Recovered/Resolved]
  - Polyarthritis [Unknown]
  - Arthropathy [Unknown]
  - Synovial cyst [Unknown]
  - Goitre [Unknown]
  - Hypothyroidism [Unknown]
  - Hypoglycaemia [Unknown]
  - Osteoarthritis [Unknown]
  - Blood pressure increased [Unknown]
  - Left ventricular hypertrophy [Unknown]
  - Electrocardiogram T wave amplitude decreased [Unknown]
  - QRS axis abnormal [Unknown]
  - Blood magnesium decreased [Unknown]
  - Gastrointestinal motility disorder [Unknown]
  - Dyspnoea exertional [Unknown]
  - Fall [Unknown]
  - Bursitis [Unknown]
  - Arthritis [Unknown]
  - Hysterectomy [Unknown]
  - Angina pectoris [Not Recovered/Not Resolved]
  - Coronary artery disease [Unknown]
  - Dyslipidaemia [Unknown]
  - Oedema [Not Recovered/Not Resolved]
  - Bursitis [Unknown]
  - Blood pressure increased [Unknown]
  - Paraesthesia [Unknown]
  - Oedema peripheral [Unknown]
  - Hypocalcaemia [Unknown]
  - Drug ineffective [Unknown]
